FAERS Safety Report 16819703 (Version 2)
Quarter: 2020Q2

REPORT INFORMATION
  Report Type: Spontaneous
  Country: BE (occurrence: BE)
  Receive Date: 20190917
  Receipt Date: 20200427
  Transmission Date: 20200713
  Serious: Yes (Hospitalization, Other)
  Sender: FDA-Public Use
  Company Number: PHHY2019BE213553

PATIENT
  Age: 64 Year
  Sex: Male
  Weight: 107 kg

DRUGS (10)
  1. TACROLIMUS. [Suspect]
     Active Substance: TACROLIMUS
     Indication: PROPHYLAXIS AGAINST GRAFT VERSUS HOST DISEASE
     Dosage: UNK
     Route: 065
     Dates: start: 201907
  2. VALGANCICLOVIR HYDROCHLORIDE. [Suspect]
     Active Substance: VALGANCICLOVIR HYDROCHLORIDE
     Indication: CYTOMEGALOVIRUS INFECTION
     Route: 065
     Dates: start: 20190814, end: 20190828
  3. MYCOPHENOLATE MOFETIL. [Suspect]
     Active Substance: MYCOPHENOLATE MOFETIL
     Indication: ALLOGENIC STEM CELL TRANSPLANTATION
     Dosage: UNK
     Route: 065
     Dates: start: 201907, end: 20190815
  4. MYCOPHENOLATE MOFETIL. [Suspect]
     Active Substance: MYCOPHENOLATE MOFETIL
     Indication: PROPHYLAXIS AGAINST GRAFT VERSUS HOST DISEASE
     Dosage: UNK
     Route: 065
  5. GANCICLOVIR SODIUM. [Suspect]
     Active Substance: GANCICLOVIR SODIUM
     Indication: CYTOMEGALOVIRUS INFECTION
     Dosage: 500 MG, QD
     Route: 065
     Dates: start: 20190829, end: 20190918
  6. GANCICLOVIR SODIUM. [Suspect]
     Active Substance: GANCICLOVIR SODIUM
     Dosage: UNK
     Route: 065
     Dates: start: 20191024
  7. TACROLIMUS. [Suspect]
     Active Substance: TACROLIMUS
     Indication: ALLOGENIC STEM CELL TRANSPLANTATION
     Dosage: UNK
     Route: 065
  8. MARIBAVIR [Suspect]
     Active Substance: MARIBAVIR
     Indication: PRODUCT USED FOR UNKNOWN INDICATION
     Dosage: 800 MG, QD
     Route: 065
     Dates: start: 20191108, end: 20200103
  9. CYCLOPHOSPHAMIDE. [Concomitant]
     Active Substance: CYCLOPHOSPHAMIDE
     Indication: PROPHYLAXIS AGAINST GRAFT VERSUS HOST DISEASE
     Route: 065
     Dates: start: 201907
  10. CIPROXINE [Concomitant]
     Active Substance: CIPROFLOXACIN
     Indication: PRODUCT USED FOR UNKNOWN INDICATION
     Route: 065

REACTIONS (9)
  - Febrile neutropenia [Unknown]
  - Dehydration [Unknown]
  - Cytomegalovirus infection [Unknown]
  - Acute kidney injury [Unknown]
  - Mucosal inflammation [Unknown]
  - Vomiting [Unknown]
  - Encephalopathy [Unknown]
  - Off label use [Unknown]
  - Decreased appetite [Unknown]

NARRATIVE: CASE EVENT DATE: 201907
